FAERS Safety Report 14033189 (Version 1)
Quarter: 2017Q4

REPORT INFORMATION
  Report Type: Spontaneous
  Country: US (occurrence: US)
  Receive Date: 20171002
  Receipt Date: 20171002
  Transmission Date: 20180321
  Serious: No
  Sender: FDA-Public Use
  Company Number: None

PATIENT
  Weight: 103.5 kg

DRUGS (5)
  1. VIVARIN [Suspect]
     Active Substance: CAFFEINE
     Indication: INSOMNIA
     Dosage: ?          OTHER FREQUENCY:2-4 HOURS;?
     Route: 048
     Dates: start: 20171002
  2. VIVARIN [Suspect]
     Active Substance: CAFFEINE
     Indication: FATIGUE
     Dosage: ?          OTHER FREQUENCY:2-4 HOURS;?
     Route: 048
     Dates: start: 20171002
  3. DOXYCYCLINE. [Concomitant]
     Active Substance: DOXYCYCLINE
  4. OMOMPERAZOLE [Concomitant]
  5. EXCEDRIN MIGRAINE [Concomitant]
     Active Substance: ACETAMINOPHEN\ASPIRIN\CAFFEINE

REACTIONS (2)
  - Micturition urgency [None]
  - Pollakiuria [None]

NARRATIVE: CASE EVENT DATE: 20171002
